FAERS Safety Report 10071849 (Version 2)
Quarter: 2014Q2

REPORT INFORMATION
  Report Type: Spontaneous
  Country: US (occurrence: US)
  Receive Date: 20140411
  Receipt Date: 20140429
  Transmission Date: 20141212
  Serious: Yes (Hospitalization)
  Sender: FDA-Public Use
  Company Number: US-BIOGENIDEC-2014BI031891

PATIENT
  Age: 56 Year
  Sex: Female

DRUGS (1)
  1. TECFIDERA [Suspect]
     Indication: MULTIPLE SCLEROSIS
     Dates: start: 201309

REACTIONS (6)
  - Myocardial infarction [Recovered/Resolved]
  - Pneumonia [Recovered/Resolved]
  - Blood glucose increased [Recovered/Resolved]
  - Night sweats [Not Recovered/Not Resolved]
  - Hormone level abnormal [Not Recovered/Not Resolved]
  - Nervousness [Not Recovered/Not Resolved]
